FAERS Safety Report 12334446 (Version 2)
Quarter: 2016Q2

REPORT INFORMATION
  Report Type: Spontaneous
  Country: IT (occurrence: IT)
  Receive Date: 20160504
  Receipt Date: 20160518
  Transmission Date: 20160815
  Serious: Yes (Hospitalization)
  Sender: FDA-Public Use
  Company Number: IT-ELI_LILLY_AND_COMPANY-IT201604009937

PATIENT
  Age: 14 Year
  Sex: Male
  Weight: 70 kg

DRUGS (4)
  1. ZYPREXA [Suspect]
     Active Substance: OLANZAPINE
     Indication: PSYCHOTIC DISORDER
     Dosage: 5 MG, QD (SUSPENDED FOR 2 DAYS)
     Route: 048
     Dates: start: 20121130, end: 20160411
  2. ZYPREXA [Interacting]
     Active Substance: OLANZAPINE
     Dosage: UNK, UNKNOWN: DOSE REDUCTION FROM THIRD DAY
     Route: 048
     Dates: start: 20160413
  3. CETIRIZINE [Interacting]
     Active Substance: CETIRIZINE HYDROCHLORIDE
     Indication: RHINITIS ALLERGIC
     Dosage: 1 DF (10MG), QD
     Route: 048
     Dates: start: 201604, end: 201604
  4. MELATONIN [Concomitant]
     Active Substance: MELATONIN
     Indication: SLEEP DISORDER
     Dosage: 2 MG, UNKNOWN
     Route: 048
     Dates: start: 20120222, end: 20160411

REACTIONS (6)
  - Dystonia [Recovering/Resolving]
  - Akathisia [Recovering/Resolving]
  - Strabismus [Recovering/Resolving]
  - Torticollis [Recovered/Resolved]
  - Drug interaction [Recovering/Resolving]
  - Eye movement disorder [Recovered/Resolved]

NARRATIVE: CASE EVENT DATE: 20160410
